FAERS Safety Report 5673929-4 (Version None)
Quarter: 2008Q2

REPORT INFORMATION
  Report Type: 
  Country: None (occurrence: None)
  Receive Date: 20080228
  Receipt Date: 20070403
  Transmission Date: 20081010
  Serious: Yes (Other)
  Sender: FDA-Public Use
  Company Number: US200704000574

PATIENT
  Age: 27 Year
  Sex: Female

DRUGS (1)
  1. SYMBYAX [Suspect]
     Dates: start: 20060101

REACTIONS (1)
  - GINGIVAL BLEEDING [None]
